FAERS Safety Report 7152030-7 (Version None)
Quarter: 2010Q4

REPORT INFORMATION
  Report Type: 
  Country: None (occurrence: None)
  Receive Date: 20101123
  Receipt Date: 20101103
  Transmission Date: 20110411
  Serious: Yes (Life-Threatening)
  Sender: FDA-Public Use
  Company Number: BG-021387

PATIENT
  Age: 81 Year
  Sex: Male

DRUGS (4)
  1. (CHLORAMBUCIL) [Suspect]
     Indication: CHRONIC LYMPHOCYTIC LEUKAEMIA
     Dosage: 52 MG,QD
     Dates: start: 20101011, end: 20101027
  2. (OTHER BLOOD PRODUCTS) [Suspect]
     Indication: ANAEMIA
     Dosage: 300 ML QD INTRAVENOUS (NOT OTHERWISE SPECIFIED)
     Route: 042
     Dates: start: 20101026
  3. ALLOPURINOL [Concomitant]
  4. ENALAPRIL MALEATE [Concomitant]

REACTIONS (2)
  - ANAEMIA [None]
  - NEUTROPENIA [None]
